FAERS Safety Report 6253516-X (Version None)
Quarter: 2009Q3

REPORT INFORMATION
  Report Type: 
  Country: None (occurrence: None)
  Receive Date: 20090701
  Receipt Date: 20090625
  Transmission Date: 20100115
  Serious: Yes (Hospitalization)
  Sender: FDA-Public Use
  Company Number: US-MYLANLABS-2009S1010227

PATIENT
  Age: 53 Year
  Sex: Female
  Weight: 102.06 kg

DRUGS (2)
  1. COPAXONE [Suspect]
     Indication: MULTIPLE SCLEROSIS
     Route: 058
     Dates: start: 20040524, end: 20080801
  2. METHOTREXATE TABLETS, USP [Suspect]
     Indication: MULTIPLE SCLEROSIS
     Route: 048
     Dates: start: 20060601, end: 20080801

REACTIONS (1)
  - MALIGNANT MELANOMA [None]
